FAERS Safety Report 15136296 (Version 3)
Quarter: 2018Q4

REPORT INFORMATION
  Report Type: Spontaneous
  Country: US (occurrence: US)
  Receive Date: 20180712
  Receipt Date: 20181113
  Transmission Date: 20190204
  Serious: No
  Sender: FDA-Public Use
  Company Number: US-SA-2018SA178071

PATIENT
  Sex: Female

DRUGS (2)
  1. PRALUENT [Suspect]
     Active Substance: ALIROCUMAB
     Dosage: UNK
     Dates: start: 20180627
  2. PRALUENT [Suspect]
     Active Substance: ALIROCUMAB
     Dosage: UNK, 1X
     Dates: start: 20180627

REACTIONS (4)
  - Pain [Unknown]
  - Injury associated with device [Unknown]
  - Device issue [Unknown]
  - Arthropathy [Unknown]

NARRATIVE: CASE EVENT DATE: 20180627
